FAERS Safety Report 6867695-4 (Version None)
Quarter: 2010Q3

REPORT INFORMATION
  Report Type: 
  Country: None (occurrence: None)
  Receive Date: 20100722
  Receipt Date: 20100426
  Transmission Date: 20110219
  Serious: No
  Sender: FDA-Public Use
  Company Number: US-BAUSCH-2010BL002502

PATIENT
  Age: 17 Year
  Sex: Male
  Weight: 95 kg

DRUGS (1)
  1. OPCON-A [Suspect]
     Route: 048
     Dates: start: 20100401, end: 20100401

REACTIONS (3)
  - ACCIDENTAL EXPOSURE [None]
  - FEELING ABNORMAL [None]
  - VOMITING [None]
